FAERS Safety Report 5850567-1 (Version None)
Quarter: 2008Q3

REPORT INFORMATION
  Report Type: 
  Country: None (occurrence: None)
  Receive Date: 20080820
  Receipt Date: 20080814
  Transmission Date: 20090109
  Serious: Yes (Life-Threatening, Hospitalization, Disabling)
  Sender: FDA-Public Use
  Company Number: GB-WYE-G02001008

PATIENT
  Age: 76 Year
  Sex: Female

DRUGS (7)
  1. IBUPROFEN [Suspect]
     Indication: BONE PAIN
     Route: 048
     Dates: start: 20080528, end: 20080603
  2. ATENOLOL [Concomitant]
     Dosage: UNKNOWN
  3. SIMVASTATIN [Concomitant]
     Dosage: UNKNOWN
  4. RAMIPRIL [Concomitant]
     Dosage: UNKNOWN
  5. RISEDRONATE SODIUM [Concomitant]
     Dosage: UNKNOWN
  6. ACETYLSALICYLIC ACID SRT [Concomitant]
  7. METFORMIN HCL [Concomitant]

REACTIONS (2)
  - OVERDOSE [None]
  - RENAL IMPAIRMENT [None]
